FAERS Safety Report 17241116 (Version 1)
Quarter: 2020Q1

REPORT INFORMATION
  Report Type: Spontaneous
  Country: US (occurrence: US)
  Receive Date: 20200106
  Receipt Date: 20200106
  Transmission Date: 20200409
  Serious: Yes (Disabling, Other)
  Sender: FDA-Public Use
  Company Number: None

PATIENT
  Age: 55 Year
  Sex: Female
  Weight: 67.5 kg

DRUGS (1)
  1. NP THYROID [Suspect]
     Active Substance: LEVOTHYROXINE\LIOTHYRONINE
     Indication: HYPOTHYROIDISM
     Dosage: ?          QUANTITY:2 TABLET(S);?
     Route: 048
     Dates: start: 20190610, end: 20191221

REACTIONS (14)
  - Pyrexia [None]
  - Fatigue [None]
  - Malaise [None]
  - Abdominal discomfort [None]
  - Cytomegalovirus infection [None]
  - Diarrhoea [None]
  - Epstein-Barr virus infection [None]
  - Insomnia [None]
  - Infectious mononucleosis [None]
  - Heart rate increased [None]
  - Feeling abnormal [None]
  - Product contamination microbial [None]
  - Dehydration [None]
  - Oropharyngeal pain [None]

NARRATIVE: CASE EVENT DATE: 20190801
